FAERS Safety Report 8531235-4 (Version None)
Quarter: 2012Q3

REPORT INFORMATION
  Report Type: 
  Country: None (occurrence: None)
  Receive Date: 20120723
  Receipt Date: 20120711
  Transmission Date: 20120928
  Serious: Yes (Hospitalization)
  Sender: FDA-Public Use
  Company Number: CA-PFIZER INC-2012166717

PATIENT
  Age: 2 Year
  Sex: Male
  Weight: 11.7 kg

DRUGS (1)
  1. VIAGRA [Suspect]
     Indication: PULMONARY HYPERTENSION
     Dosage: 6.25 MG, SINGLE
     Route: 050
     Dates: start: 20120705

REACTIONS (1)
  - HYPOTENSION [None]
